FAERS Safety Report 5076071-9 (Version None)
Quarter: 2006Q3

REPORT INFORMATION
  Report Type: 
  Country: None (occurrence: None)
  Receive Date: 20060804
  Receipt Date: 20060719
  Transmission Date: 20061208
  Serious: Yes (Hospitalization)
  Sender: FDA-Public Use
  Company Number: DSA_28512_2006

PATIENT
  Age: 73 Year
  Sex: Male

DRUGS (2)
  1. TAVOR [Suspect]
     Dates: start: 20060718, end: 20060718
  2. OXYCODONE HCL [Suspect]
     Dosage: 40 MG ONCE; PO
     Route: 048
     Dates: start: 20060718, end: 20060718

REACTIONS (6)
  - COMA [None]
  - DRUG ABUSER [None]
  - HYPERTENSION [None]
  - RESPIRATORY DEPRESSION [None]
  - SOMNOLENCE [None]
  - TACHYCARDIA [None]
